FAERS Safety Report 21283121 (Version 2)
Quarter: 2022Q3

REPORT INFORMATION
  Report Type: Report from Study
  Country: US (occurrence: US)
  Receive Date: 20220901
  Receipt Date: 20220905
  Transmission Date: 20221027
  Serious: Yes (Hospitalization, Other)
  Sender: FDA-Public Use
  Company Number: US-BRISTOL-MYERS SQUIBB COMPANY-2022-098837

PATIENT
  Age: 73 Year
  Sex: Male
  Weight: 75.8 kg

DRUGS (10)
  1. NIVOLUMAB [Suspect]
     Active Substance: NIVOLUMAB
     Indication: Pleomorphic malignant fibrous histiocytoma
     Route: 042
     Dates: start: 20220804, end: 20220824
  2. IPILIMUMAB [Suspect]
     Active Substance: IPILIMUMAB
     Indication: Pleomorphic malignant fibrous histiocytoma
     Dosage: 200MG/40ML (1 MG/KG, Q3WEEKS)
     Route: 042
     Dates: start: 20220804, end: 20220824
  3. IPILIMUMAB [Suspect]
     Active Substance: IPILIMUMAB
     Indication: Pleomorphic malignant fibrous histiocytoma
  4. CABOZANTINIB [Suspect]
     Active Substance: CABOZANTINIB
     Indication: Pleomorphic malignant fibrous histiocytoma
     Dosage: 40 MG, QD
     Route: 048
     Dates: start: 20220804, end: 20220827
  5. CABOZANTINIB [Suspect]
     Active Substance: CABOZANTINIB
     Indication: Pleomorphic malignant fibrous histiocytoma
  6. VITAMIN D3 [Concomitant]
     Active Substance: CHOLECALCIFEROL
     Indication: Product used for unknown indication
     Dosage: 1000 UNIT
     Route: 065
  7. LIDOCAINE\PRILOCAINE [Concomitant]
     Active Substance: LIDOCAINE\PRILOCAINE
     Indication: Product used for unknown indication
     Route: 065
  8. MORPHINE [Concomitant]
     Active Substance: MORPHINE
     Indication: Product used for unknown indication
     Dosage: 12 HR
     Route: 065
  9. OXYCODONE [Concomitant]
     Active Substance: OXYCODONE
     Indication: Product used for unknown indication
     Dosage: IMMEDIATE RELEASE TABLET
     Route: 065
  10. ROXICODONE [Concomitant]
     Active Substance: OXYCODONE HYDROCHLORIDE
     Indication: Product used for unknown indication
     Dosage: IMMEDIATE RELEASE TABLET
     Route: 065

REACTIONS (1)
  - Febrile neutropenia [Recovering/Resolving]

NARRATIVE: CASE EVENT DATE: 20220828
